FAERS Safety Report 4687281-4 (Version None)
Quarter: 2005Q2

REPORT INFORMATION
  Report Type: 
  Country: None (occurrence: None)
  Receive Date: 20050608
  Receipt Date: 20050526
  Transmission Date: 20051028
  Serious: Yes (Other)
  Sender: FDA-Public Use
  Company Number: 2005081180

PATIENT
  Sex: Female

DRUGS (2)
  1. LIPITOR [Suspect]
     Indication: ILL-DEFINED DISORDER
     Dosage: ORAL
     Route: 048
  2. TENORMIN [Concomitant]

REACTIONS (5)
  - ASTHENIA [None]
  - BREAST CANCER FEMALE [None]
  - MYALGIA [None]
  - MYOCARDIAL INFARCTION [None]
  - WEIGHT INCREASED [None]
